FAERS Safety Report 8617946-0 (Version None)
Quarter: 2012Q3

REPORT INFORMATION
  Report Type: 
  Country: None (occurrence: None)
  Receive Date: 20120824
  Receipt Date: 20120430
  Transmission Date: 20120928
  Serious: No
  Sender: FDA-Public Use
  Company Number: US-ASTRAZENECA-2012SE16467

PATIENT
  Age: 51 Year
  Sex: Male
  Weight: 82.6 kg

DRUGS (9)
  1. TRAMADOL HCL [Concomitant]
     Indication: BACK PAIN
  2. FLOVENT [Concomitant]
  3. SYMBICORT [Suspect]
     Indication: CHRONIC OBSTRUCTIVE PULMONARY DISEASE
     Dosage: 160/4.5 MCG 2 PUFFS TWO TIMES A DAY
     Route: 055
  4. LISINOPRIL [Suspect]
     Indication: BLOOD PRESSURE ABNORMAL
     Route: 048
  5. ALBUTEROL [Concomitant]
     Indication: CHRONIC OBSTRUCTIVE PULMONARY DISEASE
  6. SYMBICORT [Suspect]
     Indication: EMPHYSEMA
     Dosage: 160/4.5 MCG 2 PUFFS TWO TIMES A DAY
     Route: 055
  7. VENTOLIN [Concomitant]
     Indication: INHALATION THERAPY
  8. ANTI INFLAMMATORY MEDICINE [Concomitant]
  9. ALBUTEROL [Concomitant]
     Indication: EMPHYSEMA

REACTIONS (2)
  - ROAD TRAFFIC ACCIDENT [None]
  - INTERVERTEBRAL DISC DISPLACEMENT [None]
